FAERS Safety Report 18605696 (Version 1)
Quarter: 2020Q4

REPORT INFORMATION
  Report Type: Spontaneous
  Country: NL (occurrence: NL)
  Receive Date: 20201211
  Receipt Date: 20201211
  Transmission Date: 20210114
  Serious: Yes (Other)
  Sender: FDA-Public Use
  Company Number: NL-TEVA-2020-NL-1856721

PATIENT
  Sex: Female
  Weight: 54 kg

DRUGS (2)
  1. ISOTRETINOINE CAPSULE ZACHT 10MG / BRAND NAME NOT SPECIFIED [Suspect]
     Active Substance: ISOTRETINOIN
     Indication: ACNE
     Dosage: 2D1C,UNIT DOSE : 10 MG, THERAPY END DATE : ASKU
     Dates: start: 20200916
  2. ETHINYLESTRADIOL/LEVONORGESTREL TABLET 30/150UG / BRAND NAME NOT SPECI [Concomitant]
     Active Substance: ETHINYL ESTRADIOL\LEVONORGESTREL
     Dosage: 30/150 MICROGRAM, UNIT DOSE : 1 DOSAGE FORMS , THERAPY START DATE AND END DATE : ASKU

REACTIONS (2)
  - Rectal haemorrhage [Recovered/Resolved]
  - Haematemesis [Recovered/Resolved]
